FAERS Safety Report 13710460 (Version 1)
Quarter: 2017Q2

REPORT INFORMATION
  Report Type: Spontaneous
  Country: US (occurrence: US)
  Receive Date: 20170630
  Receipt Date: 20170630
  Transmission Date: 20170830
  Serious: No
  Sender: FDA-Public Use
  Company Number: None

PATIENT
  Age: 66 Year
  Sex: Female

DRUGS (12)
  1. CALCIUM [Concomitant]
     Active Substance: CALCIUM
  2. ZOMETA [Suspect]
     Active Substance: ZOLEDRONIC ACID
     Indication: PROPHYLAXIS
     Dosage: OTHER STRENGTH:MG;OTHER FREQUENCY:EVERY 6 MONTHS;?
  3. LUMIGAN [Concomitant]
     Active Substance: BIMATOPROST
  4. ANASTRAZOLE [Concomitant]
     Active Substance: ANASTROZOLE
  5. AMLODIPINE [Concomitant]
     Active Substance: AMLODIPINE BESYLATE
  6. ZOMETA [Suspect]
     Active Substance: ZOLEDRONIC ACID
     Indication: BONE CANCER
     Dosage: OTHER STRENGTH:MG;OTHER FREQUENCY:EVERY 6 MONTHS;?
  7. COSOPT [Concomitant]
     Active Substance: DORZOLAMIDE HYDROCHLORIDE\TIMOLOL MALEATE
  8. ATORVASTATIN [Concomitant]
     Active Substance: ATORVASTATIN
  9. VALIUM [Concomitant]
     Active Substance: DIAZEPAM
  10. VITAMIN B [Concomitant]
     Active Substance: VITAMIN B
  11. ASA [Concomitant]
     Active Substance: ASPIRIN
  12. PROBIOTIC [Concomitant]
     Active Substance: PROBIOTICS NOS

REACTIONS (9)
  - Dyspnoea [None]
  - Depression [None]
  - Pain [None]
  - Asthenia [None]
  - Nausea [None]
  - Malaise [None]
  - Agitation [None]
  - Anxiety [None]
  - Arthralgia [None]

NARRATIVE: CASE EVENT DATE: 20170131
